FAERS Safety Report 20209872 (Version 1)
Quarter: 2021Q4

REPORT INFORMATION
  Report Type: Spontaneous
  Country: US (occurrence: US)
  Receive Date: 20211221
  Receipt Date: 20211221
  Transmission Date: 20220303
  Serious: No
  Sender: FDA-Public Use
  Company Number: US-Accord-229495

PATIENT
  Sex: Female
  Weight: 108.86 kg

DRUGS (2)
  1. METHYLDOPA [Suspect]
     Active Substance: METHYLDOPA
     Indication: Hypertension
     Dosage: 3 TIMES A DAY
     Route: 048
  2. NIFEDIPINE [Concomitant]
     Active Substance: NIFEDIPINE

REACTIONS (4)
  - Anxiety [Unknown]
  - Withdrawal syndrome [Unknown]
  - Heart rate increased [Unknown]
  - Insomnia [Unknown]
